FAERS Safety Report 16954915 (Version 2)
Quarter: 2020Q2

REPORT INFORMATION
  Report Type: Report from Study
  Country: US (occurrence: US)
  Receive Date: 20191024
  Receipt Date: 20200520
  Transmission Date: 20200713
  Serious: Yes (Other)
  Sender: FDA-Public Use
  Company Number: US-ROCHE-2442700

PATIENT
  Age: 60 Year
  Sex: Female
  Weight: 40.86 kg

DRUGS (5)
  1. OCREVUS [Suspect]
     Active Substance: OCRELIZUMAB
     Indication: RELAPSING-REMITTING MULTIPLE SCLEROSIS
     Dosage: YES
     Route: 042
     Dates: start: 20170922
  2. LEVOTHYROXIN [Suspect]
     Active Substance: LEVOTHYROXINE
     Dosage: YES
     Route: 048
     Dates: start: 202001
  3. LEVOTHYROXIN [Suspect]
     Active Substance: LEVOTHYROXINE
     Indication: HYPOTHYROIDISM
     Route: 048
  4. OCREVUS [Suspect]
     Active Substance: OCRELIZUMAB
     Dosage: YES
     Route: 042
     Dates: start: 20171006
  5. OCREVUS [Suspect]
     Active Substance: OCRELIZUMAB
     Dosage: YES
     Route: 042
     Dates: start: 20180404

REACTIONS (5)
  - Contusion [Recovered/Resolved]
  - Blood thyroid stimulating hormone decreased [Unknown]
  - Urinary tract infection [Unknown]
  - Fall [Unknown]
  - Paraesthesia [Recovering/Resolving]

NARRATIVE: CASE EVENT DATE: 201903
